FAERS Safety Report 9120528 (Version 1)
Quarter: 2013Q1

REPORT INFORMATION
  Report Type: Spontaneous
  Country: AR (occurrence: AR)
  Receive Date: 20130226
  Receipt Date: 20130226
  Transmission Date: 20140127
  Serious: Yes (Other)
  Sender: FDA-Public Use
  Company Number: AR-AMGEN-ARGSP2013012953

PATIENT
  Age: 31 Year
  Sex: Female

DRUGS (2)
  1. ENBREL [Suspect]
     Indication: PSORIASIS
     Dosage: 25 MG, WEEKLY
     Dates: start: 20120201, end: 201208
  2. ENBREL [Suspect]
     Dosage: 25 MG, QWK
     Dates: start: 201211

REACTIONS (5)
  - Pneumonitis [Recovered/Resolved]
  - Tonsillitis [Recovered/Resolved]
  - Decreased immune responsiveness [Recovered/Resolved]
  - Influenza [Recovered/Resolved]
  - Psoriasis [Recovering/Resolving]
